FAERS Safety Report 7760833-0 (Version None)
Quarter: 2011Q3

REPORT INFORMATION
  Report Type: 
  Country: None (occurrence: None)
  Receive Date: 20110919
  Receipt Date: 20110915
  Transmission Date: 20111222
  Serious: Yes (Disabling)
  Sender: FDA-Public Use
  Company Number: US-PFIZER INC-2011218537

PATIENT
  Sex: Female

DRUGS (1)
  1. AMLODIPINE BESYLATE [Suspect]
     Indication: HYPERTENSION
     Dosage: UNK
     Dates: start: 20100101

REACTIONS (5)
  - GINGIVITIS [None]
  - GINGIVAL SWELLING [None]
  - GINGIVAL INFECTION [None]
  - TOOTH DISORDER [None]
  - DENTAL OPERATION [None]
